FAERS Safety Report 11360183 (Version 1)
Quarter: 2015Q3

REPORT INFORMATION
  Report Type: Spontaneous
  Country: DE (occurrence: DE)
  Receive Date: 20150810
  Receipt Date: 20150810
  Transmission Date: 20151125
  Serious: Yes (Life-Threatening, Hospitalization)
  Sender: FDA-Public Use
  Company Number: PHHY2015DE095763

PATIENT
  Age: 70 Year
  Sex: Male

DRUGS (15)
  1. DOCITON [Suspect]
     Active Substance: PROPRANOLOL HYDROCHLORIDE
     Indication: PRODUCT USED FOR UNKNOWN INDICATION
     Dosage: 80 MG, QD
     Route: 048
  2. REMERGIL [Suspect]
     Active Substance: MIRTAZAPINE
     Indication: PRODUCT USED FOR UNKNOWN INDICATION
     Dosage: 21 MG IN 500 ML
     Route: 042
     Dates: start: 20041026, end: 20041111
  3. DETRUSITOL [Concomitant]
     Active Substance: TOLTERODINE TARTRATE
     Indication: PRODUCT USED FOR UNKNOWN INDICATION
     Dosage: 2 MG, QD
     Route: 048
  4. LEPONEX [Suspect]
     Active Substance: CLOZAPINE
     Indication: PRODUCT USED FOR UNKNOWN INDICATION
     Dosage: 12.5 MG,
     Route: 048
     Dates: start: 20041029, end: 20041104
  5. TAVOR [Suspect]
     Active Substance: LORAZEPAM
     Indication: PRODUCT USED FOR UNKNOWN INDICATION
     Dosage: 1 MG IN 500 ML
     Route: 042
     Dates: start: 20041026, end: 20041112
  6. REMERGIL [Suspect]
     Active Substance: MIRTAZAPINE
     Route: 042
     Dates: start: 20041117, end: 20041119
  7. EDRONAX [Suspect]
     Active Substance: REBOXETINE MESYLATE
     Indication: PRODUCT USED FOR UNKNOWN INDICATION
     Dosage: 4 MG,
     Route: 048
     Dates: start: 20041119
  8. INSULIN [Concomitant]
     Active Substance: INSULIN NOS
     Indication: PRODUCT USED FOR UNKNOWN INDICATION
     Dosage: 36 IU,
     Route: 065
  9. LEPONEX [Suspect]
     Active Substance: CLOZAPINE
     Dosage: 37.5 MG, QD
     Route: 048
     Dates: start: 20041110, end: 20041118
  10. TAVOR [Suspect]
     Active Substance: LORAZEPAM
     Route: 042
     Dates: start: 20041117, end: 20041119
  11. LASIX [Suspect]
     Active Substance: FUROSEMIDE
     Indication: PRODUCT USED FOR UNKNOWN INDICATION
     Dosage: 20 MG, QD
     Route: 048
  12. JONOSTERIL [Concomitant]
     Active Substance: CALCIUM ACETATE\MAGNESIUM ACETATE\POTASSIUM ACETATE\SODIUM ACETATE\SODIUM CHLORIDE
     Indication: PRODUCT USED FOR UNKNOWN INDICATION
     Dosage: 1000 ML,
     Route: 065
  13. LEPONEX [Suspect]
     Active Substance: CLOZAPINE
     Dosage: 25 MG,
     Route: 048
     Dates: start: 20041105, end: 20041109
  14. LEPONEX [Suspect]
     Active Substance: CLOZAPINE
     Dosage: 50 MG, QD
     Route: 048
     Dates: start: 20041119
  15. BENALAPRIL [Suspect]
     Active Substance: ENALAPRIL MALEATE
     Indication: PRODUCT USED FOR UNKNOWN INDICATION
     Dosage: 2.5 MG, QD
     Route: 048

REACTIONS (2)
  - Circulatory collapse [Recovered/Resolved]
  - Depressed level of consciousness [Recovered/Resolved]

NARRATIVE: CASE EVENT DATE: 20041119
